FAERS Safety Report 7287707 (Version 3)
Quarter: 2013Q3

REPORT INFORMATION
  Report Type: Spontaneous
  Country: JP (occurrence: JP)
  Receive Date: 20100222
  Receipt Date: 20130808
  Transmission Date: 20140515
  Serious: Yes (Death)
  Sender: FDA-Public Use
  Company Number: JP-ELI_LILLY_AND_COMPANY-JP201002004027

PATIENT
  Age: 49 Year
  Sex: Male

DRUGS (4)
  1. HUMALOG LISPRO [Suspect]
     Indication: TYPE 2 DIABETES MELLITUS
     Dosage: 17 U, DAILY (1/D)
     Route: 058
  2. HUMALOG LISPRO [Suspect]
     Route: 058
     Dates: start: 20090223, end: 20090223
  3. HUMULIN NPH [Suspect]
     Indication: TYPE 2 DIABETES MELLITUS
     Dosage: 5 U, DAILY (1/D)
     Route: 058
  4. HUMULIN NPH [Suspect]
     Route: 058
     Dates: start: 20090223, end: 20090223

REACTIONS (3)
  - Hypoglycaemia [Fatal]
  - Completed suicide [Fatal]
  - Intentional overdose [Unknown]
